FAERS Safety Report 21215323 (Version 1)
Quarter: 2022Q3

REPORT INFORMATION
  Report Type: Report from Study
  Country: PK (occurrence: PK)
  Receive Date: 20220816
  Receipt Date: 20220816
  Transmission Date: 20221027
  Serious: Yes (Other)
  Sender: FDA-Public Use
  Company Number: PK-NOVARTISPH-NVSC2022PK184142

PATIENT
  Age: 65 Year
  Sex: Female
  Weight: 49 kg

DRUGS (1)
  1. KISQALI [Suspect]
     Active Substance: RIBOCICLIB
     Indication: Breast cancer
     Dosage: 600 MG, TID
     Route: 048
     Dates: start: 20191010, end: 20210603

REACTIONS (2)
  - Metastases to bone [Unknown]
  - Bone lesion [Unknown]

NARRATIVE: CASE EVENT DATE: 20220630
